FAERS Safety Report 22634259 (Version 1)
Quarter: 2023Q2

REPORT INFORMATION
  Report Type: Spontaneous
  Country: US (occurrence: None)
  Receive Date: 20230622
  Receipt Date: 20230622
  Transmission Date: 20230721
  Serious: Yes (Life-Threatening, Hospitalization)
  Sender: FDA-Public Use
  Company Number: None

PATIENT
  Age: 87 Year
  Sex: Female
  Weight: 64.5 kg

DRUGS (10)
  1. APIXABAN [Suspect]
     Active Substance: APIXABAN
     Dosage: FREQUENCY : TWICE A DAY;?
     Route: 048
  2. allopurinol 100 mg PO daily [Concomitant]
  3. atorvastatin 40 mg PO qhs [Concomitant]
  4. empagliflozin 10 mg PO daily [Concomitant]
  5. levothyroxine 125 mg PO daily [Concomitant]
  6. montelukast 10 mg PO qhs [Concomitant]
  7. ASPIRIN [Concomitant]
     Active Substance: ASPIRIN
  8. gabapentin 100 mg PO BID [Concomitant]
  9. oxybutynin 5 mg PO BID [Concomitant]
  10. diltiazem 60 mg PO TID [Concomitant]

REACTIONS (3)
  - Cerebellar haemorrhage [None]
  - Blood pressure systolic increased [None]
  - Anticoagulation drug level [None]

NARRATIVE: CASE EVENT DATE: 20230611
